FAERS Safety Report 5140957-7 (Version None)
Quarter: 2006Q4

REPORT INFORMATION
  Report Type: 
  Country: None (occurrence: None)
  Receive Date: 20061027
  Receipt Date: 20061027
  Transmission Date: 20070319
  Serious: Yes (Hospitalization)
  Sender: FDA-Public Use
  Company Number: None

PATIENT
  Sex: Female
  Weight: 88.4 kg

DRUGS (2)
  1. SIMVASTATIN [Suspect]
     Dosage: SIMVASTATIN 40MG   ONE DAILY  PO
     Route: 048
  2. GEMFIBROZIL [Suspect]
     Dosage: GEMFIBROZIL 600MG   ONE  BID   PO
     Route: 048

REACTIONS (1)
  - RHABDOMYOLYSIS [None]
